FAERS Safety Report 4679622-9 (Version None)
Quarter: 2005Q2

REPORT INFORMATION
  Report Type: 
  Country: None (occurrence: None)
  Receive Date: 20050602
  Receipt Date: 20050523
  Transmission Date: 20051028
  Serious: Yes (Other)
  Sender: FDA-Public Use
  Company Number: GB-ABBOTT-05P-167-0301316-00

PATIENT
  Age: 19 Week

DRUGS (5)
  1. NORVIR [Suspect]
     Indication: DRUG EXPOSURE DURING PREGNANCY
  2. PROTHIADEN [Suspect]
     Indication: DRUG EXPOSURE DURING PREGNANCY
  3. VIREAD [Suspect]
     Indication: DRUG EXPOSURE DURING PREGNANCY
  4. EMTRICITABINE [Suspect]
     Indication: DRUG EXPOSURE DURING PREGNANCY
  5. REYATAZ [Suspect]
     Indication: DRUG EXPOSURE DURING PREGNANCY

REACTIONS (5)
  - DRUG EXPOSURE DURING PREGNANCY [None]
  - EFFUSION [None]
  - FOETAL DISORDER [None]
  - PERICARDIAL EFFUSION [None]
  - PLEURAL EFFUSION [None]
